FAERS Safety Report 25245162 (Version 1)
Quarter: 2025Q2

REPORT INFORMATION
  Report Type: Spontaneous
  Country: US (occurrence: US)
  Receive Date: 20250428
  Receipt Date: 20250428
  Transmission Date: 20250717
  Serious: Yes (Other)
  Sender: BAYER HEALTHCARE PHARMACEUTICALS INC.
  Company Number: US-BAYER-2025A055781

PATIENT
  Age: 65 Year
  Sex: Female

DRUGS (2)
  1. BETASERON [Suspect]
     Active Substance: INTERFERON BETA-1B
     Indication: Multiple sclerosis
     Dosage: 1 MG, QOD 0.3MG
     Route: 058
     Dates: start: 201711
  2. SPRYCEL [Concomitant]
     Active Substance: DASATINIB

REACTIONS (2)
  - Multiple sclerosis relapse [None]
  - Multiple sclerosis [None]

NARRATIVE: CASE EVENT DATE: 20250301
